FAERS Safety Report 8045658-3 (Version None)
Quarter: 2012Q1

REPORT INFORMATION
  Report Type: 
  Country: None (occurrence: None)
  Receive Date: 20120112
  Receipt Date: 20120112
  Transmission Date: 20120608
  Serious: Yes (Hospitalization)
  Sender: FDA-Public Use
  Company Number: None

PATIENT
  Age: 81 Year
  Sex: Female

DRUGS (2)
  1. DABIGATRAN (PRADAXA) 150MG [Suspect]
     Indication: CARDIOMYOPATHY
     Dosage: 150 MG BID PO
     Route: 048
  2. DABIGATRAN (PRADAXA) 150MG [Suspect]
     Indication: IMPLANTABLE DEFIBRILLATOR REPLACEMENT
     Dosage: 150 MG BID PO
     Route: 048

REACTIONS (2)
  - GASTROINTESTINAL HAEMORRHAGE [None]
  - INTERNATIONAL NORMALISED RATIO INCREASED [None]
